FAERS Safety Report 17081929 (Version 2)
Quarter: 2019Q4

REPORT INFORMATION
  Report Type: Report from Study
  Country: DE (occurrence: DE)
  Receive Date: 20191127
  Receipt Date: 20191213
  Transmission Date: 20200122
  Serious: Yes (Death, Hospitalization)
  Sender: FDA-Public Use
  Company Number: DE-ACTELION-A-CH2019-198507

PATIENT
  Age: 69 Year
  Sex: Male

DRUGS (3)
  1. ADCIRCA [Concomitant]
     Active Substance: TADALAFIL
     Indication: PULMONARY ARTERIAL HYPERTENSION
     Dosage: 20 MG, BID
     Route: 048
     Dates: start: 20190103, end: 20191121
  2. AMBRISENTAN [Concomitant]
     Active Substance: AMBRISENTAN
     Indication: PULMONARY ARTERIAL HYPERTENSION
     Dosage: 10 MG, OD
     Route: 048
     Dates: start: 20190521, end: 20191121
  3. UPTRAVI [Suspect]
     Active Substance: SELEXIPAG
     Indication: PULMONARY ARTERIAL HYPERTENSION
     Dosage: 600 ?G, BID
     Route: 048
     Dates: start: 20190922, end: 20191115

REACTIONS (6)
  - Blood bilirubin increased [Unknown]
  - Multiple organ dysfunction syndrome [Fatal]
  - Blood creatinine increased [Unknown]
  - Right ventricular failure [Fatal]
  - N-terminal prohormone brain natriuretic peptide increased [Unknown]
  - Fall [Unknown]

NARRATIVE: CASE EVENT DATE: 20191112
